FAERS Safety Report 14377623 (Version 1)
Quarter: 2018Q1

REPORT INFORMATION
  Report Type: Spontaneous
  Country: PK (occurrence: PK)
  Receive Date: 20180111
  Receipt Date: 20180111
  Transmission Date: 20180509
  Serious: Yes (Other)
  Sender: FDA-Public Use
  Company Number: PK-SA-2018SA007485

PATIENT
  Age: 45 Year
  Sex: Female

DRUGS (1)
  1. DAONIL [Suspect]
     Active Substance: GLYBURIDE
     Indication: HYPERGLYCAEMIA
     Dosage: DOSE 5 MG 1+0+1/2
     Route: 048
     Dates: start: 2017

REACTIONS (6)
  - Chest pain [Unknown]
  - Polyuria [Unknown]
  - Cough [Unknown]
  - Hyperglycaemia [Not Recovered/Not Resolved]
  - Polydipsia [Unknown]
  - Hepatitis B [Unknown]

NARRATIVE: CASE EVENT DATE: 201709
